FAERS Safety Report 8014673-8 (Version None)
Quarter: 2011Q4

REPORT INFORMATION
  Report Type: 
  Country: None (occurrence: None)
  Receive Date: 20111229
  Receipt Date: 20111219
  Transmission Date: 20120403
  Serious: Yes (Hospitalization)
  Sender: FDA-Public Use
  Company Number: US-CELGENEUS-163-C5013-11120241

PATIENT
  Sex: Male
  Weight: 82.628 kg

DRUGS (45)
  1. VICODIN [Concomitant]
     Indication: PAIN
     Dosage: 500/5MG
     Route: 048
     Dates: start: 20110101
  2. ATENOLOL [Concomitant]
     Dosage: 12.5 MILLIGRAM
     Route: 065
     Dates: start: 20111201
  3. PREGABALIN [Concomitant]
     Dosage: 100 MILLIGRAM
     Route: 065
     Dates: start: 20111201
  4. ZOLPIDEM [Concomitant]
     Indication: INSOMNIA
     Dosage: 10 MILLIGRAM
     Route: 048
     Dates: start: 20110809
  5. ACETAMINOPHEN [Concomitant]
     Indication: PREMEDICATION
     Dates: start: 20111201
  6. ACETAMINOPHEN [Concomitant]
     Dosage: 650 MILLIGRAM
     Route: 065
     Dates: start: 20111202
  7. FAMOTIDINE [Concomitant]
     Dosage: 20 MILLIGRAM
     Route: 065
     Dates: start: 20111202
  8. MULTI-VITAMINS [Concomitant]
     Indication: SUPPLEMENTATION THERAPY
     Route: 048
     Dates: start: 20090401
  9. PAROXETINE [Concomitant]
     Dosage: 20 MILLIGRAM
     Route: 065
     Dates: start: 20111201
  10. SACCHAROMYCES [Concomitant]
     Dosage: 250 MILLIGRAM
     Route: 065
     Dates: start: 20111202
  11. PAXIL [Concomitant]
     Indication: DEPRESSION
     Dosage: 20 MILLIGRAM
     Route: 048
     Dates: start: 20110809
  12. BENADRYL [Concomitant]
     Indication: PREMEDICATION
     Dates: start: 20111201
  13. LENALIDOMIDE [Suspect]
     Dosage: 25 MILLIGRAM
     Route: 048
     Dates: start: 20111116, end: 20111201
  14. ASPIRIN [Concomitant]
     Dosage: 81 MILLIGRAM
     Route: 065
     Dates: start: 20110823
  15. SENNA [Concomitant]
     Dosage: 17.2 MILLIGRAM
     Route: 065
     Dates: start: 20111202
  16. ALPHA LIPOIC ACID [Concomitant]
     Indication: SUPPLEMENTATION THERAPY
     Dosage: 50 MILLIGRAM
     Route: 065
     Dates: start: 20110809
  17. ADVAIR DISKUS 100/50 [Concomitant]
     Dosage: 250/50 MCG
     Route: 055
  18. FLU SHOT [Concomitant]
     Dosage: 15 MICROGRAM
     Route: 030
     Dates: start: 20110914, end: 20110914
  19. CLOPIDOGREL [Concomitant]
     Dosage: 75 MILLIGRAM
     Route: 065
     Dates: start: 20111201
  20. HYDROXYZINE [Concomitant]
     Dosage: 25 MILLIGRAM
     Route: 065
     Dates: start: 20110701
  21. TRANSFUSION [Concomitant]
     Indication: ANAEMIA
     Route: 041
     Dates: start: 20111204
  22. LENALIDOMIDE [Suspect]
     Indication: MANTLE CELL LYMPHOMA
     Dosage: 25 MILLIGRAM
     Route: 048
     Dates: start: 20110823
  23. NUVIGIL [Concomitant]
     Route: 065
  24. ENABLEX [Concomitant]
     Route: 065
     Dates: end: 20111125
  25. KEFLEX [Concomitant]
     Indication: INFECTION
     Dosage: 500 MILLIGRAM
     Route: 048
     Dates: start: 20111017, end: 20111102
  26. CEFAZOLIN [Concomitant]
     Dosage: 2 GRAM
     Route: 041
     Dates: start: 20111201
  27. PANTOPRAZOLE [Concomitant]
     Dosage: 40 MILLIGRAM
     Route: 065
     Dates: start: 20111202
  28. LENALIDOMIDE [Suspect]
     Dosage: 25 MILLIGRAM
     Route: 048
     Dates: start: 20111213
  29. ARMODAFINIL [Concomitant]
     Dosage: 50 MILLIGRAM
     Route: 065
     Dates: start: 20111204
  30. DOCUSATE SODIUM [Concomitant]
     Dosage: 100 MILLIGRAM
     Route: 065
     Dates: start: 20111201
  31. POTASSIUM CHLORIDE [Concomitant]
     Dosage: 10 MILLIEQUIVALENTS
     Route: 065
     Dates: start: 20111202
  32. FOLIC ACID [Concomitant]
     Indication: SUPPLEMENTATION THERAPY
     Dosage: 1 MILLIGRAM
     Route: 048
     Dates: start: 20090401
  33. VESICARE [Concomitant]
     Dosage: 10 MILLIGRAM
     Route: 048
     Dates: start: 20111123
  34. DURICEF [Concomitant]
     Indication: ANTIBIOTIC PROPHYLAXIS
     Dosage: 500 MILLIGRAM
     Route: 048
     Dates: start: 20111129
  35. ASCORBIC ACID [Concomitant]
     Dosage: 500 MILLIGRAM
     Route: 065
     Dates: start: 20111204
  36. ATORVASTATIN [Concomitant]
     Dosage: 20 MILLIGRAM
     Route: 048
     Dates: start: 20050101
  37. MAGNESIUM OXIDE [Concomitant]
     Dosage: 400 MILLIGRAM
     Route: 065
     Dates: start: 20111201
  38. ALBUTEROL [Concomitant]
     Dosage: 2 PUFF
     Route: 055
  39. DEXTROSE 5%-NS-KCL [Concomitant]
     Dosage: 1000 MILLILITER
     Route: 065
     Dates: start: 20111205
  40. ENOXAPARIN [Concomitant]
     Dosage: 40 MILLIGRAM
     Route: 065
     Dates: start: 20111202
  41. MIDODRINE HYDROCHLORIDE [Concomitant]
     Dosage: 10 MILLIGRAM
     Route: 065
     Dates: start: 20111205
  42. OXYCODONE HCL AND ACETAMINOPHEN [Concomitant]
     Dosage: 1 TABLET
     Route: 065
     Dates: start: 20111205
  43. SITAGLIPTIN [Concomitant]
     Dosage: 100 MILLIGRAM
     Route: 065
     Dates: start: 20111203
  44. ALLOPURINOL [Concomitant]
     Indication: PROPHYLAXIS
     Dosage: 300 MILLIGRAM
     Route: 065
     Dates: start: 20110823, end: 20110829
  45. LYRICA [Concomitant]
     Dosage: 50 MILLIGRAM
     Route: 065
     Dates: start: 20111005

REACTIONS (1)
  - FIBULA FRACTURE [None]
